FAERS Safety Report 23345952 (Version 1)
Quarter: 2023Q4

REPORT INFORMATION
  Report Type: Spontaneous
  Country: US (occurrence: None)
  Receive Date: 20231227
  Receipt Date: 20231227
  Transmission Date: 20240110
  Serious: No
  Sender: FDA-Public Use
  Company Number: None

PATIENT
  Age: 65 Year
  Sex: Female
  Weight: 60.75 kg

DRUGS (2)
  1. EVENITY [Suspect]
     Active Substance: ROMOSOZUMAB-AQQG
     Indication: Osteoporosis
     Dates: start: 20230118, end: 20231212
  2. EVENITY [Suspect]
     Active Substance: ROMOSOZUMAB-AQQG
     Indication: Postmenopause

REACTIONS (8)
  - Burning sensation [None]
  - Influenza like illness [None]
  - Chest discomfort [None]
  - Arthralgia [None]
  - Fatigue [None]
  - Arthralgia [None]
  - Groin pain [None]
  - Arthralgia [None]
